FAERS Safety Report 6537389-3 (Version None)
Quarter: 2010Q1

REPORT INFORMATION
  Report Type: 
  Country: None (occurrence: None)
  Receive Date: 20100114
  Receipt Date: 20100107
  Transmission Date: 20100710
  Serious: Yes (Other)
  Sender: FDA-Public Use
  Company Number: JP-NOVOPROD-302819

PATIENT
  Age: 51 Year
  Sex: Female

DRUGS (2)
  1. LEVEMIR CHU PENFILL [Suspect]
     Indication: TYPE 1 DIABETES MELLITUS
     Dosage: 3 U, QD
     Route: 058
     Dates: start: 20090601
  2. NOVORAPID CHU PENFILL [Suspect]
     Indication: TYPE 1 DIABETES MELLITUS
     Dosage: 9 U, QD
     Route: 058
     Dates: start: 20090601

REACTIONS (1)
  - EOSINOPHILIC PNEUMONIA [None]
